FAERS Safety Report 8675662 (Version 2)
Quarter: 2012Q4

REPORT INFORMATION
  Report Type: 
  Country: TW (occurrence: TW)
  Receive Date: 20120720
  Receipt Date: 20120830
  Transmission Date: 20130627
  Serious: Yes (Other)
  Sender: FDA-Public Use
  Company Number: PHHY2012TW061031

PATIENT
  Age: 69 Year
  Sex: Female

DRUGS (9)
  1. AMANTADINE [Suspect]
     Indication: PARKINSONISM
     Dosage: 200 mg/day
  2. TRIHEXYPHENIDYL [Interacting]
     Indication: PARKINSONISM
     Dosage: 4 mg/day
  3. TRIHEXYPHENIDYL [Interacting]
     Dosage: 10 mg/day
  4. TRIHEXYPHENIDYL [Interacting]
     Dosage: 4 mg/day
  5. TRIHEXYPHENIDYL [Interacting]
     Dosage: 10 mg/day
  6. ARIPIPRAZOLE [Interacting]
     Indication: SCHIZOPHRENIA
     Dosage: 10 mg per day
  7. RISPERIDONE [Concomitant]
     Dosage: 3 mg/day
  8. AMISULPRIDE [Concomitant]
     Dosage: 200 mg/day
  9. AMISULPRIDE [Concomitant]
     Dosage: 400 mg/day

REACTIONS (9)
  - Tardive dyskinesia [Recovered/Resolved]
  - Dyskinesia [Recovered/Resolved]
  - Grimacing [Recovered/Resolved]
  - Excessive eye blinking [Recovered/Resolved]
  - Drug interaction [Recovered/Resolved]
  - Drug intolerance [None]
  - Hallucination, auditory [None]
  - Irritability [None]
  - Persecutory delusion [None]
